FAERS Safety Report 6893572-9 (Version None)
Quarter: 2010Q3

REPORT INFORMATION
  Report Type: 
  Country: None (occurrence: None)
  Receive Date: 20100731
  Receipt Date: 20091020
  Transmission Date: 20110219
  Serious: Yes (Other)
  Sender: FDA-Public Use
  Company Number: US-PFIZER INC-2009215172

PATIENT
  Sex: Male
  Weight: 95.238 kg

DRUGS (11)
  1. LIPITOR [Suspect]
     Indication: BLOOD CHOLESTEROL INCREASED
     Dosage: 20 MG, 1X/DAY
  2. SERTRALINE HYDROCHLORIDE [Suspect]
     Indication: MITRAL VALVE PROLAPSE
     Dosage: UNK
     Dates: start: 19960101
  3. SERTRALINE HYDROCHLORIDE [Suspect]
     Dosage: FREQUENCY: 2X/DAY, EVERY DAY;
     Dates: start: 20070101
  4. ACEBUTOLOL [Concomitant]
     Dosage: UNK
  5. TAMSULOSIN [Concomitant]
     Dosage: UNK
  6. TOPAMAX [Concomitant]
     Dosage: UNK
  7. VALIUM [Concomitant]
     Dosage: UNK
  8. NEXIUM [Concomitant]
     Dosage: UNK
  9. CLARITIN [Concomitant]
     Dosage: UNK
  10. TYLENOL W/ CODEINE [Concomitant]
     Dosage: UNK
  11. ACETYLSALICYLIC ACID [Concomitant]
     Indication: CARDIOVASCULAR DISORDER
     Dosage: UNK

REACTIONS (5)
  - ANXIETY [None]
  - ARTHRALGIA [None]
  - DEPRESSION [None]
  - MYALGIA [None]
  - SYNCOPE [None]
